FAERS Safety Report 7337687-X (Version None)
Quarter: 2011Q1

REPORT INFORMATION
  Report Type: 
  Country: None (occurrence: None)
  Receive Date: 20110303
  Receipt Date: 20110303
  Transmission Date: 20110831
  Serious: Yes (Disabling)
  Sender: FDA-Public Use
  Company Number: None

PATIENT
  Age: 54 Year
  Sex: Female
  Weight: 45.3597 kg

DRUGS (3)
  1. AZOPT [Suspect]
     Indication: GLAUCOMA
     Dosage: 1 DROP 3X DAY IN RIGHT EYE
  2. AZOPT [Suspect]
     Indication: CATARACT
     Dosage: 1 DROP 3X DAY IN RIGHT EYE
  3. AZOPT [Suspect]

REACTIONS (5)
  - HEADACHE [None]
  - VISION BLURRED [None]
  - EYE SWELLING [None]
  - ALOPECIA [None]
  - BLINDNESS UNILATERAL [None]
